FAERS Safety Report 8509997 (Version 2)
Quarter: 2012Q4

REPORT INFORMATION
  Report Type: Report from Study
  Country: US (occurrence: US)
  Receive Date: 20120413
  Receipt Date: 20121022
  Transmission Date: 20130627
  Serious: Yes (Other)
  Sender: FDA-Public Use
  Company Number: US-ASTRAZENECA-2012SE21677

PATIENT
  Age: 22230 Day
  Sex: Male
  Weight: 139.7 kg

DRUGS (15)
  1. AZD6140 [Suspect]
     Indication: CORONARY ARTERY DISEASE
     Route: 048
     Dates: start: 20120215, end: 20120228
  2. CATAPRES [Concomitant]
     Indication: HYPERTENSION
     Route: 048
  3. LANTUS INSULIN [Concomitant]
     Indication: TYPE 2 DIABETES MELLITUS
     Route: 058
  4. IMDUR [Concomitant]
     Indication: ANGINA PECTORIS
     Route: 048
  5. TOPROL XL [Concomitant]
     Indication: HYPERTENSION
     Route: 048
  6. JANUVIA [Concomitant]
     Indication: TYPE 2 DIABETES MELLITUS
     Route: 048
  7. NITROGLYCERIN [Concomitant]
     Indication: ANGINA PECTORIS
     Route: 048
  8. NITROGLYCERIN [Concomitant]
     Indication: CHEST PAIN
     Route: 048
  9. ALLOPURINOL [Concomitant]
     Indication: GOUT
     Route: 048
  10. LASIX [Concomitant]
     Indication: HYPERTENSION
     Route: 048
  11. LASIX [Concomitant]
     Indication: OEDEMA
     Route: 048
  12. PRAVACHOL [Concomitant]
     Indication: HYPERCHOLESTEROLAEMIA
     Route: 048
  13. ACCUPRIL [Concomitant]
     Indication: HYPERTENSION
     Route: 048
  14. GLUCOPHAGE [Concomitant]
     Indication: TYPE 2 DIABETES MELLITUS
     Route: 048
  15. ASA [Concomitant]
     Route: 048

REACTIONS (1)
  - Bronchitis [Recovered/Resolved]
